FAERS Safety Report 12156891 (Version 1)
Quarter: 2016Q1

REPORT INFORMATION
  Report Type: Spontaneous
  Country: IE (occurrence: IE)
  Receive Date: 20160307
  Receipt Date: 20160307
  Transmission Date: 20160526
  Serious: Yes (Other)
  Sender: FDA-Public Use
  Company Number: IE-ALLERGAN-1637679US

PATIENT
  Age: 7 Decade
  Sex: Male

DRUGS (4)
  1. HYLO-FORTE [Suspect]
     Active Substance: HYALURONATE SODIUM
     Indication: DRY EYE
     Dosage: UNK
     Dates: start: 20160107
  2. PRED MILD [Suspect]
     Active Substance: PREDNISOLONE ACETATE
     Indication: DRY EYE
     Dosage: UNK
     Route: 047
     Dates: start: 20160107, end: 20160108
  3. MAXIDEX [Suspect]
     Active Substance: DEXAMETHASONE
     Indication: DRY EYE
     Dosage: UNK
     Route: 047
     Dates: start: 20160107, end: 20160108
  4. OMEPRAZOLE. [Concomitant]
     Active Substance: OMEPRAZOLE
     Indication: HERNIA
     Dosage: 20 MG, UNK
     Route: 048

REACTIONS (3)
  - Eye pain [Not Recovered/Not Resolved]
  - Vision blurred [None]
  - Vision blurred [Not Recovered/Not Resolved]
